FAERS Safety Report 4910309-0 (Version None)
Quarter: 2006Q1

REPORT INFORMATION
  Report Type: 
  Country: None (occurrence: None)
  Receive Date: 20060209
  Receipt Date: 20060203
  Transmission Date: 20060701
  Serious: Yes (Death)
  Sender: FDA-Public Use
  Company Number: 2006-UK-00007UK

PATIENT
  Age: 54 Year
  Sex: Female

DRUGS (1)
  1. MORPHINE SULFATE [Suspect]
     Indication: PALLIATIVE CARE
     Dosage: UDV 10MG AND 30MG STRENGTHS PREPARED, PO
     Route: 048

REACTIONS (1)
  - INTERCEPTED MEDICATION ERROR [None]
